FAERS Safety Report 8116168-X (Version None)
Quarter: 2012Q1

REPORT INFORMATION
  Report Type: 
  Country: None (occurrence: None)
  Receive Date: 20120206
  Receipt Date: 20120131
  Transmission Date: 20120608
  Serious: Yes (Hospitalization)
  Sender: FDA-Public Use
  Company Number: BR-PFIZER INC-2012027535

PATIENT
  Age: 79 Year
  Sex: Female

DRUGS (3)
  1. LIPITOR [Suspect]
     Indication: BLOOD CHOLESTEROL
     Dosage: 10 MG, 1X/DAY
     Route: 048
     Dates: start: 20080131
  2. INDAPAMIDE [Concomitant]
  3. PANTOPRAZOLE [Concomitant]

REACTIONS (3)
  - PULMONARY EMBOLISM [None]
  - FALL [None]
  - PAIN IN EXTREMITY [None]
